FAERS Safety Report 9458594 (Version 1)
Quarter: 2013Q3

REPORT INFORMATION
  Report Type: Spontaneous
  Country: FR (occurrence: FR)
  Receive Date: 20130814
  Receipt Date: 20130814
  Transmission Date: 20140515
  Serious: Yes (Hospitalization)
  Sender: FDA-Public Use
  Company Number: PHHY2013FR086046

PATIENT
  Sex: Female

DRUGS (5)
  1. GILENYA [Suspect]
     Dosage: UNK
     Route: 064
  2. THYROZOL [Concomitant]
     Dosage: UNK
     Route: 064
  3. LEVOTHYROX [Concomitant]
     Dosage: UNK
     Route: 064
  4. CITALOPRAM [Concomitant]
     Dosage: UNK
     Route: 064
     Dates: end: 20130403
  5. AUGMENTIN                               /SCH/ [Concomitant]
     Dosage: UNK
     Route: 064

REACTIONS (3)
  - Hyperthyroidism [Recovered/Resolved]
  - Tachycardia [Recovered/Resolved]
  - Foetal exposure during pregnancy [Unknown]
